FAERS Safety Report 4656583-X (Version None)
Quarter: 2005Q2

REPORT INFORMATION
  Report Type: 
  Country: None (occurrence: None)
  Receive Date: 20050331
  Receipt Date: 20041217
  Transmission Date: 20051028
  Serious: No
  Sender: FDA-Public Use
  Company Number: US103834

PATIENT
  Age: 47 Year
  Sex: Female
  Weight: 59.9 kg

DRUGS (5)
  1. NEULASTA [Suspect]
     Indication: CHEMOTHERAPY
     Dosage: 6 MG
  2. DOXORUBICIN HYDROCHLORIDE [Concomitant]
  3. BLEOMYCIN SULFATE [Concomitant]
  4. VINBLASTINE SULFATE [Concomitant]
  5. DACARBAZINE [Concomitant]

REACTIONS (5)
  - ASTHENIA [None]
  - BONE PAIN [None]
  - INFLUENZA LIKE ILLNESS [None]
  - MALAISE [None]
  - MYALGIA [None]
